FAERS Safety Report 10313468 (Version 3)
Quarter: 2015Q2

REPORT INFORMATION
  Report Type: Report from Study
  Country: GR (occurrence: GR)
  Receive Date: 20140718
  Receipt Date: 20150527
  Transmission Date: 20150821
  Serious: Yes (Congenital Anomaly)
  Sender: FDA-Public Use
  Company Number: GR-NOVOPROD-416311

PATIENT
  Sex: Male
  Weight: 4.4 kg

DRUGS (2)
  1. ACTRAPID [Suspect]
     Active Substance: INSULIN HUMAN
     Indication: GESTATIONAL DIABETES
     Dosage: 30 IU, QD (NIGHT)
     Route: 064
     Dates: start: 20140331, end: 20140429
  2. HUMULIN NOS [Concomitant]
     Active Substance: INSULIN HUMAN
     Dosage: 37 IU, QD (19 IU IN THE MORNING AND 18 IU IN NIGHT)
     Route: 064
     Dates: end: 20140429

REACTIONS (2)
  - Congenital hypothyroidism [Not Recovered/Not Resolved]
  - Foetal exposure during pregnancy [Recovered/Resolved]

NARRATIVE: CASE EVENT DATE: 20140331
